FAERS Safety Report 9809095 (Version 2)
Quarter: 2014Q1

REPORT INFORMATION
  Report Type: Report from Study
  Country: BR (occurrence: BR)
  Receive Date: 20140110
  Receipt Date: 20140206
  Transmission Date: 20141002
  Serious: Yes (Life-Threatening, Hospitalization, Disabling, Other)
  Sender: FDA-Public Use
  Company Number: PHHY2014BR002546

PATIENT
  Age: 76 Year
  Sex: Female
  Weight: 62 kg

DRUGS (7)
  1. RASILEZ AMLO [Suspect]
     Indication: HYPERTENSION
     Dosage: 1 DF (300MG ALIS + 10 MG AMLO), DAILY
     Route: 048
     Dates: end: 20131121
  2. LINAGLIPTIN [Concomitant]
     Indication: DIABETES MELLITUS
     Dosage: 1 DF (5 MG), DAILY
     Route: 048
  3. METOPROLOL SUCCINATE [Concomitant]
     Indication: CARDIAC DISORDER
     Dosage: 1 DF (50 MG), DAILY
     Route: 048
     Dates: end: 20131121
  4. PHENYTOIN [Concomitant]
     Indication: EPILEPSY
     Dosage: 2 DF (100 MG), DAILY
     Route: 048
  5. CLOXAZOLAM [Concomitant]
     Indication: ANXIOLYTIC THERAPY
     Dosage: 1 DF (2 MG), DAILY
     Route: 048
  6. METFORMIN [Concomitant]
     Indication: DIABETES MELLITUS
     Dosage: 2 DF (750 MG), DAILY
     Route: 048
  7. GLICLAZIDE [Concomitant]
     Indication: DIABETES MELLITUS
     Dosage: 1 DF (70 MG), DAILY
     Route: 048

REACTIONS (1)
  - Infarction [Recovering/Resolving]
